FAERS Safety Report 25725143 (Version 1)
Quarter: 2025Q3

REPORT INFORMATION
  Report Type: Spontaneous
  Country: IN (occurrence: IN)
  Receive Date: 20250826
  Receipt Date: 20250826
  Transmission Date: 20251020
  Serious: Yes (Other)
  Sender: ALKEM
  Company Number: IN-ALKEM LABORATORIES LIMITED-IN-ALKEM-2025-03541

PATIENT
  Age: 21 Year
  Sex: Male

DRUGS (1)
  1. PREGABALIN [Suspect]
     Active Substance: PREGABALIN
     Indication: Fatigue
     Route: 048

REACTIONS (6)
  - Drug abuse [Unknown]
  - Withdrawal syndrome [Unknown]
  - Depressed mood [Unknown]
  - Yawning [Unknown]
  - Lethargy [Unknown]
  - Intentional product misuse [Unknown]
